FAERS Safety Report 15781147 (Version 2)
Quarter: 2019Q1

REPORT INFORMATION
  Report Type: Report from Study
  Country: US (occurrence: US)
  Receive Date: 20190102
  Receipt Date: 20190320
  Transmission Date: 20190417
  Serious: Yes (Hospitalization, Other)
  Sender: FDA-Public Use
  Company Number: US-SA-2018SA394490

PATIENT
  Age: 63 Year
  Sex: Female

DRUGS (4)
  1. INSULIN GLARGINE [Suspect]
     Active Substance: INSULIN GLARGINE
     Dosage: 60 U
     Dates: start: 1990
  2. INSULIN GLULISINE [Suspect]
     Active Substance: INSULIN GLULISINE
     Dosage: 20 UNK
  3. INSULIN GLULISINE [Suspect]
     Active Substance: INSULIN GLULISINE
     Indication: TYPE 2 DIABETES MELLITUS
     Dosage: 58 U, QD
     Route: 058
  4. INSULIN GLARGINE [Suspect]
     Active Substance: INSULIN GLARGINE
     Indication: TYPE 2 DIABETES MELLITUS
     Dosage: 65 U, QD
     Route: 058

REACTIONS (7)
  - Leg amputation [Unknown]
  - Wound [Not Recovered/Not Resolved]
  - Vascular graft [Recovered/Resolved]
  - Toe amputation [Unknown]
  - Foot amputation [Unknown]
  - Foot operation [Unknown]
  - Intestinal resection [Recovered/Resolved]

NARRATIVE: CASE EVENT DATE: 20181003
